FAERS Safety Report 13033556 (Version 3)
Quarter: 2017Q1

REPORT INFORMATION
  Report Type: Report from Study
  Country: US (occurrence: US)
  Receive Date: 20161216
  Receipt Date: 20170203
  Transmission Date: 20170428
  Serious: Yes (Other)
  Sender: FDA-Public Use
  Company Number: PHEH2016US032315

PATIENT
  Age: 71 Year
  Sex: Female
  Weight: 86.17 kg

DRUGS (8)
  1. ENTRESTO [Suspect]
     Active Substance: SACUBITRIL\VALSARTAN
     Dosage: 100 MG (49/51), BID
     Route: 048
     Dates: start: 20160915, end: 20160929
  2. VITAMIN D3 [Concomitant]
     Active Substance: CHOLECALCIFEROL
     Indication: PRODUCT USED FOR UNKNOWN INDICATION
     Route: 065
  3. ENTRESTO [Suspect]
     Active Substance: SACUBITRIL\VALSARTAN
     Indication: CARDIAC FAILURE CHRONIC
     Dosage: 50 MG (24/26 MG), BID
     Route: 048
     Dates: start: 20160823, end: 20160915
  4. LASIX [Suspect]
     Active Substance: FUROSEMIDE
     Indication: PRODUCT USED FOR UNKNOWN INDICATION
     Dosage: UNK
     Route: 065
  5. LASIX [Suspect]
     Active Substance: FUROSEMIDE
     Dosage: DECREASED
     Route: 065
     Dates: start: 20160929
  6. ENTRESTO [Suspect]
     Active Substance: SACUBITRIL\VALSARTAN
     Dosage: 200 MG (97/103), BID
     Route: 048
     Dates: start: 20160929, end: 20161026
  7. MAGNESIUM [Concomitant]
     Active Substance: MAGNESIUM
     Indication: PRODUCT USED FOR UNKNOWN INDICATION
     Dosage: UNK
     Route: 065
  8. ENTRESTO [Suspect]
     Active Substance: SACUBITRIL\VALSARTAN
     Dosage: 200 MG (97/103), BID
     Route: 048
     Dates: start: 20161109, end: 20161128

REACTIONS (19)
  - Palpitations [Unknown]
  - Wheezing [Unknown]
  - Infection [Unknown]
  - Urinary retention [Unknown]
  - Hypersensitivity [Unknown]
  - Rash [Recovering/Resolving]
  - Dizziness [Not Recovered/Not Resolved]
  - Renal disorder [Unknown]
  - Heart rate increased [Unknown]
  - Urticaria [Unknown]
  - Blood urine present [Unknown]
  - Dysuria [Unknown]
  - Urine output increased [Unknown]
  - Urinary hesitation [Unknown]
  - Dysphonia [Not Recovered/Not Resolved]
  - Dyspnoea [Not Recovered/Not Resolved]
  - Granuloma annulare [Recovering/Resolving]
  - Pollakiuria [Not Recovered/Not Resolved]
  - Urinary tract infection [Unknown]

NARRATIVE: CASE EVENT DATE: 20160915
